FAERS Safety Report 16819616 (Version 2)
Quarter: 2019Q3

REPORT INFORMATION
  Report Type: Report from Study
  Country: US (occurrence: US)
  Receive Date: 20190917
  Receipt Date: 20190923
  Transmission Date: 20191005
  Serious: Yes (Hospitalization)
  Sender: FDA-Public Use
  Company Number: US-ACTELION-A-NJ2019-195573

PATIENT
  Age: 65 Year
  Sex: Female

DRUGS (5)
  1. BENZONATATE. [Concomitant]
     Active Substance: BENZONATATE
  2. ELIQUIS [Concomitant]
     Active Substance: APIXABAN
  3. TORSEMIDE. [Concomitant]
     Active Substance: TORSEMIDE
  4. OPSUMIT [Suspect]
     Active Substance: MACITENTAN
     Indication: PULMONARY ARTERIAL HYPERTENSION
     Dosage: 10 MG, QD
     Route: 048
     Dates: start: 20171219
  5. DEEP SEA PREMIUM SALINE [Concomitant]
     Route: 055

REACTIONS (2)
  - Thrombosis [Unknown]
  - Pulmonary embolism [Unknown]

NARRATIVE: CASE EVENT DATE: 20190816
